FAERS Safety Report 6285166-3 (Version None)
Quarter: 2009Q3

REPORT INFORMATION
  Report Type: 
  Country: None (occurrence: None)
  Receive Date: 20090727
  Receipt Date: 20090714
  Transmission Date: 20100115
  Serious: Yes (Other)
  Sender: FDA-Public Use
  Company Number: PHHY2009GB18622

PATIENT
  Sex: Male

DRUGS (1)
  1. CLOZARIL [Suspect]
     Indication: SCHIZOPHRENIA
     Dosage: UNK
     Route: 048
     Dates: start: 20090219, end: 20090508

REACTIONS (5)
  - NASOPHARYNGITIS [None]
  - NEUTROPENIA [None]
  - NEUTROPHIL COUNT DECREASED [None]
  - PSYCHOTIC DISORDER [None]
  - WHITE BLOOD CELL COUNT DECREASED [None]
